FAERS Safety Report 6043053-X (Version None)
Quarter: 2009Q1

REPORT INFORMATION
  Report Type: 
  Country: None (occurrence: None)
  Receive Date: 20090119
  Receipt Date: 20090106
  Transmission Date: 20090719
  Serious: Yes (Hospitalization, Other)
  Sender: FDA-Public Use
  Company Number: US-ELI_LILLY_AND_COMPANY-US200901000692

PATIENT
  Sex: Female

DRUGS (5)
  1. FORTEO [Suspect]
     Indication: SPINAL FRACTURE
     Dosage: UNK, UNK
  2. FORTEO [Suspect]
     Dosage: UNK, UNK
     Dates: start: 20080101
  3. NEXIUM [Concomitant]
     Indication: GASTROOESOPHAGEAL REFLUX DISEASE
  4. REGLAN [Concomitant]
     Indication: GASTROOESOPHAGEAL REFLUX DISEASE
  5. MYSOLINE [Concomitant]
     Indication: TREMOR

REACTIONS (5)
  - ASTHMA [None]
  - COLON CANCER [None]
  - HOSPITALISATION [None]
  - SPINAL FRACTURE [None]
  - VISUAL ACUITY REDUCED [None]
